FAERS Safety Report 9375641 (Version 1)
Quarter: 2013Q2

REPORT INFORMATION
  Report Type: Spontaneous
  Country: CA (occurrence: CA)
  Receive Date: 20130628
  Receipt Date: 20130628
  Transmission Date: 20140414
  Serious: Yes (Other)
  Sender: FDA-Public Use
  Company Number: CA-UCBSA-089644

PATIENT
  Age: 28 Year
  Sex: Female
  Weight: 75 kg

DRUGS (2)
  1. VIMPAT [Suspect]
     Route: 048
  2. CARBAMAZEPINE [Concomitant]

REACTIONS (2)
  - Swollen tongue [Recovered/Resolved]
  - Throat tightness [Recovered/Resolved]
